FAERS Safety Report 5587644-9 (Version None)
Quarter: 2008Q1

REPORT INFORMATION
  Report Type: 
  Country: None (occurrence: None)
  Receive Date: 20080108
  Receipt Date: 20071227
  Transmission Date: 20080703
  Serious: Yes (Hospitalization)
  Sender: FDA-Public Use
  Company Number: US021862

PATIENT
  Sex: Male

DRUGS (2)
  1. PROVIGIL [Suspect]
     Dosage: 200 MG QAM ORAL
     Route: 048
     Dates: end: 20070901
  2. PROVIGIL [Suspect]
     Dosage: 200 MG PRN ORAL
     Route: 048
     Dates: end: 20071101

REACTIONS (1)
  - ATRIAL FIBRILLATION [None]
